FAERS Safety Report 11533636 (Version 1)
Quarter: 2015Q3

REPORT INFORMATION
  Report Type: Spontaneous
  Country: GB (occurrence: GB)
  Receive Date: 20150921
  Receipt Date: 20150921
  Transmission Date: 20151125
  Serious: Yes (Other)
  Sender: FDA-Public Use
  Company Number: GB-COREPHARMA LLC-2015COR00198

PATIENT
  Sex: Male

DRUGS (2)
  1. PRAMIPEXOLE. [Suspect]
     Active Substance: PRAMIPEXOLE
     Indication: PARKINSON^S DISEASE
  2. ROPINIROLE. [Suspect]
     Active Substance: ROPINIROLE
     Indication: PARKINSON^S DISEASE

REACTIONS (3)
  - Paraphilia [Recovering/Resolving]
  - Stereotypy [Recovered/Resolved]
  - Hypersexuality [Recovering/Resolving]
